FAERS Safety Report 5422880-3 (Version None)
Quarter: 2007Q3

REPORT INFORMATION
  Report Type: 
  Country: None (occurrence: None)
  Receive Date: 20070822
  Receipt Date: 20070810
  Transmission Date: 20080115
  Serious: Yes (Disabling, Other)
  Sender: FDA-Public Use
  Company Number: US-PFIZER INC-2007041408

PATIENT
  Sex: Female

DRUGS (5)
  1. ZOLOFT [Suspect]
  2. OXYCONTIN [Concomitant]
  3. DURAGESIC-100 [Concomitant]
  4. TRAZODONE HCL [Concomitant]
  5. ALL OTHER THERAPEUTIC PRODUCTS [Concomitant]

REACTIONS (9)
  - ANKLE FRACTURE [None]
  - CARDIAC DISORDER [None]
  - INSOMNIA [None]
  - PAIN [None]
  - SPINAL COLUMN STENOSIS [None]
  - SPINAL FUSION SURGERY [None]
  - UPPER LIMB FRACTURE [None]
  - WALKING DISABILITY [None]
  - WRIST FRACTURE [None]
